FAERS Safety Report 9303358 (Version 2)
Quarter: 2013Q2

REPORT INFORMATION
  Report Type: Spontaneous
  Country: DE (occurrence: None)
  Receive Date: 20130516
  Receipt Date: 20130521
  Transmission Date: 20140414
  Serious: Yes (Hospitalization)
  Sender: FDA-Public Use
  Company Number: AUR-APL-2013-03873

PATIENT
  Age: 63 Year
  Sex: Male

DRUGS (9)
  1. OLANZAPINE (OLANZAPINE) [Suspect]
     Indication: PRODUCT USED FOR UNKNOWN INDICATION
     Dosage: 7.5 MG, 1 IN 1 D, ORAL
     Route: 048
     Dates: start: 20121126, end: 20121127
  2. VALSARTAN [Suspect]
     Indication: PRODUCT USED FOR UNKNOWN INDICATION
     Dosage: 320 MG, 1 IN 1 D, ORAL
     Route: 048
     Dates: start: 20121203, end: 20121203
  3. PANTOPRAZOLE (PANTOPRAZOLE) [Suspect]
     Indication: PRODUCT USED FOR UNKNOWN INDICATION
     Dosage: 80 MG, 1 IN 1 D, ORAL
     Route: 048
     Dates: start: 20121203, end: 20121203
  4. BISOPROLOL (BISOPROLOL) [Concomitant]
  5. DIAZEPAM (DIAZEPAM) [Concomitant]
  6. ASS (ACETYLSALICYLIC ACID) [Concomitant]
  7. EPIVIR (LAMIVUDINE) [Concomitant]
  8. RITONAVIR (RITONAVIR) [Concomitant]
  9. PREZISTA (DARUNAVIR) [Concomitant]

REACTIONS (1)
  - Hyponatraemia [None]
